FAERS Safety Report 6997351-3 (Version None)
Quarter: 2010Q3

REPORT INFORMATION
  Report Type: 
  Country: None (occurrence: None)
  Receive Date: 20100918
  Receipt Date: 20090930
  Transmission Date: 20110219
  Serious: No
  Sender: FDA-Public Use
  Company Number: US-WYE-H11335809

PATIENT
  Sex: Male
  Weight: 106.69 kg

DRUGS (2)
  1. PRISTIQ [Suspect]
     Indication: DEPRESSION
     Route: 048
     Dates: start: 20090923
  2. WARFARIN SODIUM [Concomitant]

REACTIONS (3)
  - ANXIETY [None]
  - CONDITION AGGRAVATED [None]
  - INSOMNIA [None]
